FAERS Safety Report 9364791 (Version 1)
Quarter: 2013Q2

REPORT INFORMATION
  Report Type: Report from Study
  Country: US (occurrence: US)
  Receive Date: 20130624
  Receipt Date: 20130624
  Transmission Date: 20140414
  Serious: Yes (Other)
  Sender: FDA-Public Use
  Company Number: US-ABBOTT-13P-163-1107691-00

PATIENT
  Age: 82 Year
  Sex: Female

DRUGS (4)
  1. HUMIRA [Suspect]
     Indication: RHEUMATOID ARTHRITIS
     Route: 058
     Dates: start: 2009, end: 2011
  2. HUMIRA [Suspect]
     Route: 058
     Dates: start: 2011, end: 201304
  3. SYNTHROID [Concomitant]
     Indication: THYROID DISORDER
  4. COZAAR [Concomitant]
     Indication: HYPERTENSION

REACTIONS (7)
  - Arthropathy [Recovered/Resolved]
  - Arthropathy [Recovered/Resolved]
  - Injection site haemorrhage [Not Recovered/Not Resolved]
  - Injection site haemorrhage [Recovered/Resolved]
  - Injection site pain [Not Recovered/Not Resolved]
  - Pain [Not Recovered/Not Resolved]
  - Drug effect decreased [Unknown]
